FAERS Safety Report 11744744 (Version 1)
Quarter: 2015Q4

REPORT INFORMATION
  Report Type: Report from Study
  Country: SA (occurrence: SA)
  Receive Date: 20151116
  Receipt Date: 20151116
  Transmission Date: 20160304
  Serious: Yes (Hospitalization)
  Sender: FDA-Public Use
  Company Number: SA-ABBVIE-15P-259-1497041-00

PATIENT
  Age: 44 Year
  Sex: Female

DRUGS (3)
  1. VIEKIRAX [Suspect]
     Active Substance: OMBITASVIR\PARITAPREVIR\RITONAVIR
     Indication: HEPATITIS C
     Route: 048
     Dates: start: 20151025
  2. PENTASA [Concomitant]
     Active Substance: MESALAMINE
     Indication: PRODUCT USED FOR UNKNOWN INDICATION
  3. BUDENOFALK [Concomitant]
     Active Substance: BUDESONIDE
     Indication: CROHN^S DISEASE

REACTIONS (4)
  - Vision blurred [Not Recovered/Not Resolved]
  - Oedema peripheral [Not Recovered/Not Resolved]
  - Ascites [Not Recovered/Not Resolved]
  - Weight increased [Not Recovered/Not Resolved]
